FAERS Safety Report 8255900-1 (Version None)
Quarter: 2012Q2

REPORT INFORMATION
  Report Type: 
  Country: None (occurrence: None)
  Receive Date: 20120403
  Receipt Date: 20120321
  Transmission Date: 20120825
  Serious: Yes (Hospitalization)
  Sender: FDA-Public Use
  Company Number: US-ROCHE-1046529

PATIENT
  Age: 61 Year
  Sex: Female
  Weight: 47.3 kg

DRUGS (3)
  1. AVASTIN [Suspect]
     Indication: OVARIAN EPITHELIAL CANCER
     Dosage: FREQUENCY: OVER 30-90 MIN
     Route: 042
     Dates: start: 20111221
  2. PACLITAXEL [Suspect]
     Indication: OVARIAN EPITHELIAL CANCER
     Dosage: FREQUENCY: OVER 1 HOUR ON DAYS 1, 8 AND 15
     Route: 042
     Dates: start: 20111221
  3. CARBOPLATIN [Suspect]
     Indication: OVARIAN EPITHELIAL CANCER
     Dosage: AUC 6 ON DAY 1
     Route: 042
     Dates: start: 20111221

REACTIONS (1)
  - SMALL INTESTINAL OBSTRUCTION [None]
